FAERS Safety Report 8584835-X (Version None)
Quarter: 2012Q3

REPORT INFORMATION
  Report Type: 
  Country: None (occurrence: None)
  Receive Date: 20120810
  Receipt Date: 20120731
  Transmission Date: 20120928
  Serious: Yes (Hospitalization, Other)
  Sender: FDA-Public Use
  Company Number: US-BAYER-2012-079425

PATIENT
  Age: 31 Year
  Sex: Female
  Weight: 103.4 kg

DRUGS (19)
  1. FEXOFENADINE [Concomitant]
     Dosage: 180 MG, UNK
     Dates: start: 20090629
  2. SYNTHROID [Concomitant]
     Dosage: 225 ?G, DAILY
     Route: 048
     Dates: start: 20090629, end: 20090929
  3. TOPAMAX [Concomitant]
     Dosage: 75 MG, HS
     Route: 048
     Dates: start: 20090710, end: 20090929
  4. TOPAMAX [Concomitant]
     Dosage: 50 MG, IN AM (MORNING)
     Route: 048
     Dates: start: 20090710, end: 20090929
  5. YAZ [Suspect]
  6. XANAX [Concomitant]
     Dosage: 0.25 MG, DAILY
     Route: 048
     Dates: start: 20090629, end: 20090929
  7. TOPAMAX [Concomitant]
     Dosage: 25 MG, 2 TIMES DAILY
     Route: 048
     Dates: start: 20090710, end: 20090929
  8. MECLIZINE [Concomitant]
     Dosage: 25 MG, UNK
     Dates: start: 20090718
  9. PROCHLORPERAZINE [Concomitant]
     Dosage: 10 MG, UNK
     Dates: start: 20090818
  10. CLARINEX [Concomitant]
     Dosage: 5 MG, UNK
     Dates: start: 20080501
  11. LEXAPRO [Concomitant]
     Dosage: 20 MG, DAILY
     Route: 048
     Dates: start: 20090718, end: 20090929
  12. PROTONIX [Concomitant]
     Dosage: 40 MG, BID, DAILY
     Route: 048
     Dates: start: 20090710, end: 20090929
  13. IMITREX [Concomitant]
     Indication: MIGRAINE
     Dosage: 50 MG, ONCE, PRN
     Route: 048
     Dates: start: 20090710, end: 20090929
  14. MOTRIN [Concomitant]
     Indication: PAIN
     Dosage: 600 MG, EVER 6 HOURS, PRN
     Route: 048
     Dates: start: 20090926, end: 20090929
  15. AZITHROMYCIN [Concomitant]
     Dosage: 250 MG, UNK
     Dates: start: 20090926
  16. FEXOFENADINE [Concomitant]
     Dosage: 180 MG, UNK
     Dates: start: 20080428
  17. SERTRALINE HYDROCHLORIDE [Concomitant]
     Dosage: 100 MG, UNK
     Dates: start: 20090706
  18. NASONEX [Concomitant]
     Dosage: UNK
     Dates: start: 20090910
  19. VICODIN [Concomitant]
     Dosage: 1 TO 2 TABLETS, Q4HR PRN
     Route: 048
     Dates: start: 20090926, end: 20090929

REACTIONS (3)
  - BILIARY DYSKINESIA [None]
  - PULMONARY EMBOLISM [None]
  - DEEP VEIN THROMBOSIS [None]
